FAERS Safety Report 18311072 (Version 1)
Quarter: 2020Q3

REPORT INFORMATION
  Report Type: Spontaneous
  Country: GB (occurrence: GB)
  Receive Date: 20200924
  Receipt Date: 20200924
  Transmission Date: 20201103
  Serious: Yes (Hospitalization, Other)
  Sender: FDA-Public Use
  Company Number: GB-ROCHE-2679390

PATIENT
  Age: 35 Year
  Sex: Male

DRUGS (1)
  1. OCRELIZUMAB. [Suspect]
     Active Substance: OCRELIZUMAB
     Indication: RELAPSING MULTIPLE SCLEROSIS
     Dosage: NEXT DOSES IN AUG/2019 AND APR/2020
     Route: 065
     Dates: start: 201902

REACTIONS (4)
  - Meningism [Unknown]
  - Mucosal ulceration [Unknown]
  - Neutropenic sepsis [Recovered/Resolved]
  - Pyrexia [Unknown]
